FAERS Safety Report 18546513 (Version 1)
Quarter: 2020Q4

REPORT INFORMATION
  Report Type: Spontaneous
  Country: US (occurrence: US)
  Receive Date: 20201125
  Receipt Date: 20201125
  Transmission Date: 20210114
  Serious: No
  Sender: FDA-Public Use
  Company Number: US-PFIZER INC-2020462014

PATIENT
  Sex: Female
  Weight: 58.97 kg

DRUGS (1)
  1. SERTRALINE HCL [Suspect]
     Active Substance: SERTRALINE HYDROCHLORIDE
     Indication: ANXIETY DISORDER
     Dosage: UNK

REACTIONS (3)
  - Pain [Recovered/Resolved]
  - Sensitisation [Unknown]
  - Abdominal pain upper [Recovered/Resolved]
